FAERS Safety Report 17404599 (Version 4)
Quarter: 2020Q2

REPORT INFORMATION
  Report Type: Spontaneous
  Country: US (occurrence: US)
  Receive Date: 20200211
  Receipt Date: 20200610
  Transmission Date: 20200713
  Serious: Yes (Hospitalization)
  Sender: FDA-Public Use
  Company Number: US-VIFOR (INTERNATIONAL) INC.-VIT-2020-00929

PATIENT
  Age: 27 Year
  Sex: Male

DRUGS (4)
  1. VELTASSA [Suspect]
     Active Substance: PATIROMER
     Route: 048
     Dates: start: 201906
  2. VELTASSA [Suspect]
     Active Substance: PATIROMER
     Indication: HYPERKALAEMIA
     Dosage: PACKET 1/3 CUP OF WATER ADDED
     Route: 048
     Dates: start: 20190627
  3. VELTASSA [Suspect]
     Active Substance: PATIROMER
     Dosage: PACKET IN 1/3 CUP OF WATER
     Route: 048
     Dates: start: 20190827
  4. VELTASSA [Suspect]
     Active Substance: PATIROMER
     Dates: start: 202005

REACTIONS (8)
  - Blood uric acid increased [Not Recovered/Not Resolved]
  - Product dose omission [Unknown]
  - Hospitalisation [Not Recovered/Not Resolved]
  - Flatulence [Not Recovered/Not Resolved]
  - Dizziness [Unknown]
  - Hypertension [Unknown]
  - Overdose [Unknown]
  - Gout [Not Recovered/Not Resolved]

NARRATIVE: CASE EVENT DATE: 2019
